FAERS Safety Report 24236608 (Version 1)
Quarter: 2024Q3

REPORT INFORMATION
  Report Type: Report from Study
  Country: US (occurrence: None)
  Receive Date: 20240822
  Receipt Date: 20240822
  Transmission Date: 20241017
  Serious: Yes (Disabling, Other)
  Sender: ASTRAZENECA
  Company Number: 2022A324139

PATIENT
  Sex: Male

DRUGS (1)
  1. TAGRISSO [Suspect]
     Active Substance: OSIMERTINIB
     Indication: Lung carcinoma cell type unspecified stage 0
     Route: 048

REACTIONS (6)
  - Bladder cancer [Unknown]
  - Pollakiuria [Unknown]
  - Dehydration [Unknown]
  - Diarrhoea [Unknown]
  - Weight decreased [Unknown]
  - Product dose omission issue [Unknown]
